FAERS Safety Report 6843060-0 (Version None)
Quarter: 2010Q3

REPORT INFORMATION
  Report Type: 
  Country: None (occurrence: None)
  Receive Date: 20100712
  Receipt Date: 20100629
  Transmission Date: 20110219
  Serious: Yes (Other)
  Sender: FDA-Public Use
  Company Number: 2010-2294

PATIENT
  Age: 62 Year
  Sex: Female

DRUGS (5)
  1. APOKYN [Suspect]
     Indication: PARKINSON'S DISEASE
     Dosage: 3 ML 0 TO 4 TIMES PER DAY (3 ML, AS REQUIRED),
  2. REQUIP XL [Suspect]
     Indication: PARKINSON'S DISEASE
     Dosage: 20 MG (4 MG,), ORAL
     Route: 048
     Dates: start: 20080101
  3. REQUIP [Suspect]
     Indication: PARKINSON'S DISEASE
     Dosage: ORAL
     Route: 048
     Dates: start: 20040101, end: 20080101
  4. SINEMET [Suspect]
     Indication: PARKINSON'S DISEASE
     Dosage: 4 DOSAGE FORMS (1 DOSAGE FORMS, 4 IN 1 D), ORAL
     Route: 048
     Dates: start: 20020101
  5. COMTAN [Suspect]
     Indication: PARKINSON'S DISEASE
     Dosage: 800 MG (200 MG, 4 IN 1 D),
     Dates: start: 20070101

REACTIONS (7)
  - ABASIA [None]
  - IMMOBILE [None]
  - INSOMNIA [None]
  - MUSCLE SPASMS [None]
  - MUSCULOSKELETAL STIFFNESS [None]
  - PAIN [None]
  - SOMNOLENCE [None]
